FAERS Safety Report 14538663 (Version 2)
Quarter: 2018Q1

REPORT INFORMATION
  Report Type: Spontaneous
  Country: US (occurrence: US)
  Receive Date: 20180216
  Receipt Date: 20180309
  Transmission Date: 20180509
  Serious: No
  Sender: FDA-Public Use
  Company Number: US-ELI_LILLY_AND_COMPANY-US201802006704

PATIENT
  Age: 20 Year
  Sex: Female
  Weight: 52.15 kg

DRUGS (2)
  1. ZYPREXA [Suspect]
     Active Substance: OLANZAPINE
     Indication: AFFECTIVE DISORDER
     Dosage: 5 MG, DAILY
     Route: 065
  2. ZYPREXA [Suspect]
     Active Substance: OLANZAPINE
     Dosage: 2.5 MG, DAILY
     Route: 065
     Dates: start: 201802

REACTIONS (6)
  - Mental disorder [Unknown]
  - Back pain [Unknown]
  - Somnolence [Recovering/Resolving]
  - Abdominal discomfort [Unknown]
  - Mood altered [Unknown]
  - Musculoskeletal discomfort [Recovering/Resolving]
